FAERS Safety Report 5822075-5 (Version None)
Quarter: 2008Q3

REPORT INFORMATION
  Report Type: 
  Country: None (occurrence: None)
  Receive Date: 20080725
  Receipt Date: 20080318
  Transmission Date: 20090109
  Serious: Yes (Death, Other)
  Sender: FDA-Public Use
  Company Number: US-BAYER-200819359GPV

PATIENT
  Age: 17 Month
  Sex: Male

DRUGS (12)
  1. ALEMTUZUMAB [Suspect]
     Indication: STEM CELL TRANSPLANT
     Route: 065
  2. ALEMTUZUMAB [Suspect]
     Route: 065
  3. ALEMTUZUMAB [Suspect]
     Route: 065
  4. ALEMTUZUMAB [Suspect]
     Route: 065
  5. FLUDARABINE [Suspect]
     Indication: STEM CELL TRANSPLANT
     Route: 042
  6. MELPHALAN [Suspect]
     Indication: STEM CELL TRANSPLANT
     Route: 065
  7. METHOTREXATE SODIUM [Concomitant]
     Indication: PROPHYLAXIS AGAINST GRAFT VERSUS HOST DISEASE
     Route: 065
  8. METHYLPREDNISOLONE [Concomitant]
     Indication: PROPHYLAXIS AGAINST GRAFT VERSUS HOST DISEASE
  9. CYCLOSPORINE [Concomitant]
     Indication: PROPHYLAXIS AGAINST GRAFT VERSUS HOST DISEASE
     Route: 065
  10. FLUCONAZOLE [Concomitant]
     Indication: ANTIFUNGAL PROPHYLAXIS
     Route: 065
  11. VORICONIZOLE [Concomitant]
     Indication: ANTIFUNGAL PROPHYLAXIS
     Route: 065
  12. NEUPOGEN [Concomitant]
     Route: 065

REACTIONS (5)
  - HYPERTENSION [None]
  - HYPOTENSION [None]
  - INTERSTITIAL LUNG DISEASE [None]
  - LEFT VENTRICULAR DYSFUNCTION [None]
  - RESPIRATORY DISTRESS [None]
